FAERS Safety Report 5867048-1 (Version None)
Quarter: 2008Q3

REPORT INFORMATION
  Report Type: 
  Country: None (occurrence: None)
  Receive Date: 20080902
  Receipt Date: 20080829
  Transmission Date: 20090109
  Serious: Yes (Death)
  Sender: FDA-Public Use
  Company Number: B0528119A

PATIENT
  Age: 88 Year
  Sex: Male

DRUGS (9)
  1. NITROGLYCERIN [Suspect]
     Dosage: 4G PER DAY
     Route: 065
     Dates: start: 20080206, end: 20080304
  2. CIPROFLOXACIN HYDROCHLORIDE [Suspect]
     Dosage: 400MG PER DAY
     Route: 065
     Dates: start: 20080206, end: 20080304
  3. DIAMICRON [Suspect]
     Dosage: 1TAB PER DAY
     Route: 048
     Dates: end: 20080305
  4. CEFTAZIDIME [Suspect]
     Dosage: 10MG PER DAY
  5. INIPOMP [Suspect]
     Indication: DRUG USE FOR UNKNOWN INDICATION
     Route: 048
  6. LASIX [Suspect]
     Dosage: 1TAB PER DAY
     Route: 048
  7. AUGMENTIN '125' [Concomitant]
     Route: 065
     Dates: start: 20080122, end: 20080206
  8. ORBENINE [Concomitant]
     Route: 065
     Dates: start: 20080112, end: 20080122
  9. OFLOCET [Concomitant]
     Route: 065
     Dates: start: 20080122, end: 20080206

REACTIONS (18)
  - ASTERIXIS [None]
  - CARDIAC FAILURE [None]
  - CATHETER SITE HAEMORRHAGE [None]
  - CHROMATURIA [None]
  - CONFUSIONAL STATE [None]
  - ECCHYMOSIS [None]
  - FATIGUE [None]
  - GASTROINTESTINAL HAEMORRHAGE [None]
  - HAEMORRHAGIC DISORDER [None]
  - HALLUCINATION [None]
  - HEPATIC FAILURE [None]
  - HEPATITIS CHOLESTATIC [None]
  - JAUNDICE [None]
  - MYOCARDIAL ISCHAEMIA [None]
  - NEPHRITIS INTERSTITIAL [None]
  - OBSTRUCTIVE AIRWAYS DISORDER [None]
  - RENAL FAILURE ACUTE [None]
  - VITAMIN K DEFICIENCY [None]
